FAERS Safety Report 6191051-8 (Version None)
Quarter: 2009Q2

REPORT INFORMATION
  Report Type: 
  Country: None (occurrence: None)
  Receive Date: 20090513
  Receipt Date: 20090505
  Transmission Date: 20091009
  Serious: Yes (Death)
  Sender: FDA-Public Use
  Company Number: 2009004841

PATIENT
  Sex: Male

DRUGS (1)
  1. FENTORA [Suspect]
     Dosage: BU
     Route: 002

REACTIONS (1)
  - DEATH [None]
